FAERS Safety Report 7532231-6 (Version None)
Quarter: 2011Q2

REPORT INFORMATION
  Report Type: 
  Country: None (occurrence: None)
  Receive Date: 20110608
  Receipt Date: 20110525
  Transmission Date: 20111010
  Serious: Yes (Other)
  Sender: FDA-Public Use
  Company Number: PHHY2011BR46599

PATIENT
  Sex: Male

DRUGS (3)
  1. TRILEPTAL [Suspect]
     Indication: CONVULSION
     Dosage: 3 ML, Q12H
     Route: 048
  2. DIAZEPAM [Suspect]
     Dosage: 5 MG, 1 TABLET AT NIGHT
  3. BACLOFEN [Suspect]
     Indication: HYPERTONIA
     Dosage: 10 MG, Q12H(1 TABLET EVERY 12 HOURS )

REACTIONS (1)
  - CONVULSION [None]
